FAERS Safety Report 4424022-X (Version None)
Quarter: 2004Q3

REPORT INFORMATION
  Report Type: 
  Country: None (occurrence: None)
  Receive Date: 20040809
  Receipt Date: 20040809
  Transmission Date: 20050211
  Serious: Yes (Other)
  Sender: FDA-Public Use
  Company Number: None

PATIENT
  Age: 53 Year
  Sex: Male
  Weight: 87.5442 kg

DRUGS (7)
  1. KETEK [Suspect]
     Indication: SINUSITIS
     Dosage: 2 QD PO
     Route: 048
     Dates: start: 20040804, end: 20040804
  2. ATACAND [Concomitant]
  3. TIZANIDINE HCL [Concomitant]
  4. NEURONTIN [Concomitant]
  5. CLONAZEPAM [Concomitant]
  6. ASPIRIN [Concomitant]
  7. CEREBRAL [Concomitant]

REACTIONS (3)
  - ABDOMINAL PAIN [None]
  - PALPITATIONS [None]
  - SINUS ARRHYTHMIA [None]
